FAERS Safety Report 11245615 (Version 3)
Quarter: 2017Q1

REPORT INFORMATION
  Report Type: Spontaneous
  Country: JP (occurrence: JP)
  Receive Date: 20150707
  Receipt Date: 20170131
  Transmission Date: 20170428
  Serious: Yes (Other)
  Sender: FDA-Public Use
  Company Number: JP-BAXTER-2015BAX036379

PATIENT
  Age: 76 Year
  Sex: Female

DRUGS (5)
  1. DIANEAL [Suspect]
     Active Substance: CALCIUM CHLORIDE\DEXTROSE\MAGNESIUM CHLORIDE\SODIUM CHLORIDE\SODIUM LACTATE
     Indication: NEPHROTIC SYNDROME
  2. DIANEAL [Suspect]
     Active Substance: CALCIUM CHLORIDE\DEXTROSE\MAGNESIUM CHLORIDE\SODIUM CHLORIDE\SODIUM LACTATE
     Indication: END STAGE RENAL DISEASE
  3. DIANEAL [Suspect]
     Active Substance: CALCIUM CHLORIDE\DEXTROSE\MAGNESIUM CHLORIDE\SODIUM CHLORIDE\SODIUM LACTATE
     Indication: NEPHROSCLEROSIS
     Route: 033
     Dates: start: 201312, end: 201411
  4. INDIGO CARMINE [Concomitant]
     Active Substance: INDIGOTINDISULFONATE SODIUM
     Route: 065
  5. INDIGO CARMINE [Concomitant]
     Active Substance: INDIGOTINDISULFONATE SODIUM
     Indication: SCAN WITH CONTRAST
     Route: 065

REACTIONS (1)
  - Pleuroperitoneal communication [Recovering/Resolving]
